FAERS Safety Report 5073848-0 (Version None)
Quarter: 2006Q3

REPORT INFORMATION
  Report Type: 
  Country: None (occurrence: None)
  Receive Date: 20060808
  Receipt Date: 20060726
  Transmission Date: 20061208
  Serious: Yes (Hospitalization)
  Sender: FDA-Public Use
  Company Number: PH-MERCK-0607PHL00008

PATIENT

DRUGS (3)
  1. INVANZ [Suspect]
     Indication: PROPHYLAXIS
     Route: 042
     Dates: start: 20060701, end: 20060701
  2. ANTINEOPLASTIC (UNSPECIFIED) [Concomitant]
     Indication: GALLBLADDER CANCER
     Route: 065
     Dates: start: 20060701
  3. ANTINEOPLASTIC (UNSPECIFIED) [Concomitant]
     Route: 065
     Dates: start: 20060701

REACTIONS (4)
  - DRUG ADMINISTRATION ERROR [None]
  - INCORRECT DRUG ADMINISTRATION RATE [None]
  - OEDEMA [None]
  - URINARY RETENTION [None]
